FAERS Safety Report 4674472-1 (Version None)
Quarter: 2005Q2

REPORT INFORMATION
  Report Type: 
  Country: None (occurrence: None)
  Receive Date: 20050526
  Receipt Date: 20050512
  Transmission Date: 20051028
  Serious: Yes (Other)
  Sender: FDA-Public Use
  Company Number: FR-JNJFOC-20050505383

PATIENT
  Sex: Male

DRUGS (3)
  1. TOPALGIC [Suspect]
     Dosage: 1 TO 2 TABLETS (100MG) DAILY.
     Route: 049
  2. HUMALOG [Concomitant]
     Route: 065
  3. STATIN [Concomitant]
     Indication: HYPERCHOLESTEROLAEMIA
     Route: 049

REACTIONS (1)
  - HYPOGLYCAEMIA [None]
